FAERS Safety Report 13911643 (Version 1)
Quarter: 2017Q3

REPORT INFORMATION
  Report Type: Spontaneous
  Country: US (occurrence: US)
  Receive Date: 20170828
  Receipt Date: 20170828
  Transmission Date: 20171127
  Serious: No
  Sender: FDA-Public Use
  Company Number: US-ROCHE-1144109

PATIENT
  Sex: Male

DRUGS (4)
  1. NUTROPIN AQ [Suspect]
     Active Substance: SOMATROPIN
     Indication: BODY HEIGHT BELOW NORMAL
     Route: 050
  2. NUTROPIN AQ [Suspect]
     Active Substance: SOMATROPIN
     Indication: GROWTH HORMONE DEFICIENCY
     Route: 050
     Dates: start: 19970204
  3. NUTROPIN AQ [Suspect]
     Active Substance: SOMATROPIN
     Route: 050
     Dates: start: 19970505
  4. NUTROPIN AQ [Suspect]
     Active Substance: SOMATROPIN
     Route: 050
     Dates: start: 19970908

REACTIONS (1)
  - Growth retardation [Unknown]
